FAERS Safety Report 7071910-4 (Version None)
Quarter: 2010Q4

REPORT INFORMATION
  Report Type: 
  Country: None (occurrence: None)
  Receive Date: 20101029
  Receipt Date: 20091103
  Transmission Date: 20110411
  Serious: No
  Sender: FDA-Public Use
  Company Number: A0814753A

PATIENT
  Age: 67 Year
  Sex: Female

DRUGS (11)
  1. ADVAIR DISKUS 100/50 [Suspect]
     Indication: ASTHMA
     Dosage: 1PUFF TWICE PER DAY
     Route: 055
     Dates: start: 20080101, end: 20090701
  2. ADVAIR DISKUS 100/50 [Suspect]
     Dosage: 1PUFF TWICE PER DAY
     Route: 055
     Dates: start: 20090701
  3. SINGULAIR [Concomitant]
  4. NASONEX [Concomitant]
  5. DIOVAN HCT [Concomitant]
  6. FOSAMAX [Concomitant]
  7. EVISTA [Concomitant]
  8. MULTI-VITAMIN [Concomitant]
  9. ASCORBIC ACID [Concomitant]
  10. LOVAZA [Concomitant]
  11. GLUCOSAMINE [Concomitant]

REACTIONS (1)
  - DYSPHONIA [None]
